FAERS Safety Report 19846924 (Version 1)
Quarter: 2021Q3

REPORT INFORMATION
  Report Type: Spontaneous
  Country: US (occurrence: US)
  Receive Date: 20210917
  Receipt Date: 20210917
  Transmission Date: 20211014
  Serious: Yes (Other)
  Sender: FDA-Public Use
  Company Number: None

PATIENT
  Age: 65 Year
  Sex: Male

DRUGS (21)
  1. AZELASTINE. [Concomitant]
     Active Substance: AZELASTINE HYDROCHLORIDE
  2. CERTIRIZINE [Concomitant]
  3. MOMETASONE [Concomitant]
     Active Substance: MOMETASONE
  4. SILDENAFIL. [Concomitant]
     Active Substance: SILDENAFIL
  5. METFORMIN [Concomitant]
     Active Substance: METFORMIN HYDROCHLORIDE
  6. COENZYME Q10 [Concomitant]
     Active Substance: DIETARY SUPPLEMENT\UBIDECARENONE
  7. FLECTOR [Concomitant]
     Active Substance: DICLOFENAC EPOLAMINE
  8. PROAIR HFA [Concomitant]
     Active Substance: ALBUTEROL SULFATE
  9. PIROXICAM. [Concomitant]
     Active Substance: PIROXICAM
  10. ESCOMEPRA MAG [Concomitant]
  11. FLORASTOR [Concomitant]
     Active Substance: SACCHAROMYCES CEREVISIAE
  12. FLUVASTATIN [Concomitant]
     Active Substance: FLUVASTATIN SODIUM
  13. TRAMADOL. [Concomitant]
     Active Substance: TRAMADOL
  14. VOLTAREN [Concomitant]
     Active Substance: DICLOFENAC SODIUM
  15. REPATHA [Suspect]
     Active Substance: EVOLOCUMAB
     Indication: TYPE IIA HYPERLIPIDAEMIA
     Dosage: ?          OTHER FREQUENCY:Q 2 WKS;?
     Route: 058
     Dates: start: 20210304
  16. ADVAIR HFA [Concomitant]
     Active Substance: FLUTICASONE PROPIONATE\SALMETEROL XINAFOATE
  17. NASONEX [Concomitant]
     Active Substance: MOMETASONE FUROATE
  18. VITAMIN D3 [Concomitant]
     Active Substance: CHOLECALCIFEROL
  19. ALPRAZOLAM. [Concomitant]
     Active Substance: ALPRAZOLAM
  20. SERTRALINE [Concomitant]
     Active Substance: SERTRALINE HYDROCHLORIDE
  21. VIT B?12 [Concomitant]

REACTIONS (2)
  - Amnesia [None]
  - Transient ischaemic attack [None]

NARRATIVE: CASE EVENT DATE: 20210829
